FAERS Safety Report 15690888 (Version 3)
Quarter: 2019Q3

REPORT INFORMATION
  Report Type: Spontaneous
  Country: US (occurrence: US)
  Receive Date: 20181205
  Receipt Date: 20190911
  Transmission Date: 20191004
  Serious: Yes (Other)
  Sender: FDA-Public Use
  Company Number: US-SA-2018SA328339

PATIENT
  Age: 47 Year
  Sex: Female
  Weight: 98 kg

DRUGS (14)
  1. CISPLATIN. [Concomitant]
     Active Substance: CISPLATIN
     Indication: GALLBLADDER CANCER
  2. DILAUDID [Concomitant]
     Active Substance: HYDROMORPHONE HYDROCHLORIDE
     Dosage: UNK
     Dates: start: 20140201
  3. METOPROLOL. [Concomitant]
     Active Substance: METOPROLOL
     Dosage: UNK
     Dates: start: 20090101
  4. TAXOTERE [Suspect]
     Active Substance: DOCETAXEL
     Indication: GALLBLADDER CANCER
     Dosage: 20 MG, Q3W
     Route: 042
     Dates: start: 20141009, end: 20141009
  5. AMLODIPINE [Concomitant]
     Active Substance: AMLODIPINE BESYLATE
     Dosage: UNK
     Dates: start: 20090101
  6. GEMCITABINE. [Concomitant]
     Active Substance: GEMCITABINE
     Indication: GALLBLADDER CANCER
  7. GEMZAR [Concomitant]
     Active Substance: GEMCITABINE HYDROCHLORIDE
     Indication: GALLBLADDER CANCER
  8. CARBOPLATIN. [Concomitant]
     Active Substance: CARBOPLATIN
     Indication: GALLBLADDER CANCER
  9. MAGNESIUM [Concomitant]
     Active Substance: MAGNESIUM
     Dosage: UNK
     Dates: start: 20090101
  10. TAXOTERE [Suspect]
     Active Substance: DOCETAXEL
     Dosage: 20 MG, Q3W
     Route: 042
     Dates: start: 20160804, end: 20160804
  11. PARAPLATIN [Concomitant]
     Active Substance: CARBOPLATIN
     Indication: GALLBLADDER CANCER
  12. PLATINOL [Concomitant]
     Active Substance: CISPLATIN
     Indication: GALLBLADDER CANCER
  13. LORAZEPAM. [Concomitant]
     Active Substance: LORAZEPAM
     Dosage: UNK
     Dates: start: 20090101
  14. GABAPENTIN. [Concomitant]
     Active Substance: GABAPENTIN
     Dosage: UNK
     Dates: start: 20090101

REACTIONS (2)
  - Alopecia [Recovering/Resolving]
  - Psychological trauma [Unknown]

NARRATIVE: CASE EVENT DATE: 20141101
